FAERS Safety Report 20004705 (Version 1)
Quarter: 2021Q4

REPORT INFORMATION
  Report Type: Spontaneous
  Country: HK (occurrence: HK)
  Receive Date: 20211028
  Receipt Date: 20211028
  Transmission Date: 20220303
  Serious: Yes (Other)
  Sender: FDA-Public Use
  Company Number: HK-ALKEM LABORATORIES LIMITED-HK-ALKEM-2021-06519

PATIENT
  Age: 28 Year
  Sex: Female

DRUGS (2)
  1. MYCOPHENOLATE MOFETIL [Suspect]
     Active Substance: MYCOPHENOLATE MOFETIL
     Indication: Product used for unknown indication
     Dosage: UNK (750 MG IN MORNING, 500MG IN AFTERNOON)
     Route: 065
     Dates: start: 2000
  2. PREDNISOLONE [Suspect]
     Active Substance: PREDNISOLONE
     Indication: Product used for unknown indication
     Dosage: 5 MILLIGRAM, QD
     Route: 065
     Dates: start: 2000

REACTIONS (3)
  - Central nervous system lymphoma [Unknown]
  - Diffuse large B-cell lymphoma [Unknown]
  - Epstein-Barr virus antigen positive [Unknown]
